FAERS Safety Report 10372237 (Version 2)
Quarter: 2014Q3

REPORT INFORMATION
  Report Type: Spontaneous
  Country: US (occurrence: US)
  Receive Date: 20140808
  Receipt Date: 20140808
  Transmission Date: 20150326
  Serious: No
  Sender: FDA-Public Use
  Company Number: US-BRISTOL-MYERS SQUIBB COMPANY-19073865

PATIENT
  Age: 47 Year
  Sex: Male
  Weight: 136.05 kg

DRUGS (2)
  1. SPRYCEL [Suspect]
     Active Substance: DASATINIB
     Indication: CHRONIC MYELOID LEUKAEMIA
     Dosage: TABS,STOPPED ON 06/13/2013 ,RESTARTED ON 06/26/2013
     Route: 048
     Dates: start: 20130611
  2. ZYRTEC [Concomitant]
     Active Substance: CETIRIZINE HYDROCHLORIDE

REACTIONS (8)
  - Fatigue [Unknown]
  - Skin disorder [Unknown]
  - Diarrhoea [Unknown]
  - Headache [Unknown]
  - Dizziness [Unknown]
  - Sinusitis [Recovering/Resolving]
  - Asthenia [Unknown]
  - Rash [Unknown]
